FAERS Safety Report 8602155-1 (Version None)
Quarter: 2012Q3

REPORT INFORMATION
  Report Type: 
  Country: None (occurrence: None)
  Receive Date: 20120817
  Receipt Date: 20120809
  Transmission Date: 20120928
  Serious: Yes (Other)
  Sender: FDA-Public Use
  Company Number: IT-JNJFOC-20120800076

PATIENT
  Sex: Female

DRUGS (12)
  1. ACETAMINOPHEN [Concomitant]
     Indication: PRODUCT USED FOR UNKNOWN INDICATION
     Route: 048
  2. HALOPERIDOL [Suspect]
     Route: 048
     Dates: start: 20120613, end: 20120702
  3. LANTUS [Concomitant]
     Indication: TYPE 2 DIABETES MELLITUS
  4. HALOPERIDOL [Suspect]
     Indication: DEPRESSION
     Route: 048
     Dates: start: 20120703, end: 20120711
  5. CLONIDINE [Concomitant]
     Indication: HYPERTENSION
     Route: 062
  6. REPAGLINIDE [Concomitant]
     Indication: TYPE 2 DIABETES MELLITUS
     Route: 048
  7. METFORMIN HYDROCHLORIDE [Concomitant]
     Indication: TYPE 2 DIABETES MELLITUS
     Route: 048
  8. KARVEA [Concomitant]
     Indication: HYPERTENSION
     Route: 048
  9. NORVASC [Concomitant]
     Indication: HYPERTENSION
     Route: 048
     Dates: start: 20120613, end: 20120701
  10. GABAPENTIN [Concomitant]
     Indication: PRODUCT USED FOR UNKNOWN INDICATION
     Route: 048
  11. TRAZODONE HCL [Suspect]
     Indication: DEPRESSION
     Route: 048
     Dates: start: 20120613, end: 20120701
  12. ASPIRIN [Concomitant]
     Indication: HYPERTENSION
     Route: 048

REACTIONS (6)
  - DECREASED APPETITE [None]
  - DRY MOUTH [None]
  - ANTICHOLINERGIC SYNDROME [None]
  - EXTRAPYRAMIDAL DISORDER [None]
  - DYSARTHRIA [None]
  - DYSSTASIA [None]
